FAERS Safety Report 8094202-3 (Version None)
Quarter: 2012Q1

REPORT INFORMATION
  Report Type: 
  Country: None (occurrence: None)
  Receive Date: 20120126
  Receipt Date: 20120120
  Transmission Date: 20120608
  Serious: Yes (Death)
  Sender: FDA-Public Use
  Company Number: 2012MA000997

PATIENT
  Age: 51 Year
  Sex: Male

DRUGS (3)
  1. VENLAFAXINE HCL [Suspect]
     Indication: DEPRESSION
     Dates: start: 20100827
  2. MIRTAZAPINE [Suspect]
     Indication: DEPRESSION
     Dates: start: 20100101
  3. MIRTAZAPINE [Suspect]
     Indication: DEPRESSION
     Dates: start: 20100101

REACTIONS (5)
  - DRUG INEFFECTIVE [None]
  - COMPLETED SUICIDE [None]
  - DISEASE RECURRENCE [None]
  - DEPRESSION [None]
  - ANXIETY [None]
